FAERS Safety Report 6675491-6 (Version None)
Quarter: 2010Q2

REPORT INFORMATION
  Report Type: 
  Country: None (occurrence: None)
  Receive Date: 20100409
  Receipt Date: 20100407
  Transmission Date: 20101027
  Serious: Yes (Hospitalization)
  Sender: FDA-Public Use
  Company Number: B0644551A

PATIENT
  Age: 50 Year
  Sex: Male

DRUGS (6)
  1. ARIXTRA [Suspect]
     Indication: DRUG USE FOR UNKNOWN INDICATION
     Dosage: 2.5MG PER DAY
     Route: 058
     Dates: start: 20100103, end: 20100112
  2. KARDEGIC [Concomitant]
     Dosage: 75MG PER DAY
     Route: 065
  3. PERFALGAN [Concomitant]
     Dosage: 1G THREE TIMES PER DAY
  4. TRANXENE [Concomitant]
     Dosage: 20MG THREE TIMES PER DAY
  5. TRAMADOL HCL [Concomitant]
     Dosage: 100MG TWICE PER DAY
  6. LEVETIRACETAM [Concomitant]
     Dosage: 500MG THREE TIMES PER DAY
     Route: 065

REACTIONS (3)
  - ABDOMINAL DISTENSION [None]
  - HAEMORRHAGE [None]
  - POST PROCEDURAL HAEMATOMA [None]
